FAERS Safety Report 8139677-6 (Version None)
Quarter: 2012Q1

REPORT INFORMATION
  Report Type: 
  Country: None (occurrence: None)
  Receive Date: 20120215
  Receipt Date: 20120208
  Transmission Date: 20120608
  Serious: Yes (Other)
  Sender: FDA-Public Use
  Company Number: PHEH2012US003387

PATIENT
  Sex: Female
  Weight: 66.3 kg

DRUGS (6)
  1. LOVASTATIN [Concomitant]
     Dosage: 20 MG, UNK
     Route: 048
     Dates: start: 20080101
  2. SYNTHROID [Concomitant]
     Indication: HYPOTHYROIDISM
     Dosage: 88 UG, UNK
     Route: 048
     Dates: start: 20080101
  3. TOPROL-XL [Concomitant]
     Indication: HYPERTENSION
     Dosage: 100 MG, UNK
     Route: 048
     Dates: start: 20080101
  4. ASPIRIN [Concomitant]
     Indication: CARDIAC DISORDER
     Dosage: 325 MG, UNK
     Route: 048
     Dates: start: 20080101
  5. RHINOCAP [Concomitant]
     Indication: HYPERSENSITIVITY
     Dosage: UNK
     Route: 045
     Dates: start: 20080101
  6. RECLAST [Suspect]
     Indication: OSTEOPOROSIS
     Dosage: 5 MG, SINGLE DOSE
     Route: 042
     Dates: start: 20101001

REACTIONS (5)
  - GINGIVAL SWELLING [None]
  - OSTEONECROSIS [None]
  - PAIN IN JAW [None]
  - OSTEONECROSIS OF JAW [None]
  - TRAUMATIC ULCER [None]
